FAERS Safety Report 10449189 (Version 2)
Quarter: 2014Q4

REPORT INFORMATION
  Report Type: Spontaneous
  Country: US (occurrence: US)
  Receive Date: 20140912
  Receipt Date: 20141020
  Transmission Date: 20150528
  Serious: Yes (Other)
  Sender: FDA-Public Use
  Company Number: US-BRISTOL-MYERS SQUIBB COMPANY-21360706

PATIENT
  Age: 69 Year
  Sex: Female

DRUGS (34)
  1. TRIAMTERENE + HCTZ [Concomitant]
  2. FLUTICASONE PROPIONATE. [Concomitant]
     Active Substance: FLUTICASONE PROPIONATE
  3. GLIMEPIRIDE. [Concomitant]
     Active Substance: GLIMEPIRIDE
  4. FUROSEMIDE. [Concomitant]
     Active Substance: FUROSEMIDE
  5. FELODIPINE. [Concomitant]
     Active Substance: FELODIPINE
  6. METOPROLOL [Concomitant]
     Active Substance: METOPROLOL
  7. CLOTRIMAZOLE. [Concomitant]
     Active Substance: CLOTRIMAZOLE
  8. ASPIRIN. [Concomitant]
     Active Substance: ASPIRIN
  9. LANOXIN [Concomitant]
     Active Substance: DIGOXIN
  10. METOPROLOL [Concomitant]
     Active Substance: METOPROLOL
  11. VITAMIN D3 [Concomitant]
     Active Substance: CHOLECALCIFEROL
  12. MICARDIS [Concomitant]
     Active Substance: TELMISARTAN
  13. LOSARTAN POTASSIUM. [Concomitant]
     Active Substance: LOSARTAN POTASSIUM
  14. BYETTA [Suspect]
     Active Substance: EXENATIDE
     Dates: start: 20110412, end: 20120512
  15. JANUMET [Suspect]
     Active Substance: METFORMIN HYDROCHLORIDE\SITAGLIPTIN PHOSPHATE
     Dates: start: 20090206, end: 20090502
  16. VICTOZA [Suspect]
     Active Substance: LIRAGLUTIDE
     Dates: start: 20110110, end: 20121026
  17. VITAMIN B12 [Concomitant]
     Active Substance: CYANOCOBALAMIN
  18. BETAMETHASONE [Concomitant]
     Active Substance: BETAMETHASONE
  19. LORATADINE. [Concomitant]
     Active Substance: LORATADINE
  20. CALCIUM [Concomitant]
     Active Substance: CALCIUM
  21. COZAAR [Concomitant]
     Active Substance: LOSARTAN POTASSIUM
  22. LOTRIMIN CREAM [Concomitant]
  23. DIGOXIN. [Concomitant]
     Active Substance: DIGOXIN
  24. FLUOCINOLONE ACETONIDE. [Concomitant]
     Active Substance: FLUOCINOLONE ACETONIDE
  25. AMARYL [Concomitant]
     Active Substance: GLIMEPIRIDE
  26. ERYTHROMYCIN. [Concomitant]
     Active Substance: ERYTHROMYCIN
  27. LOVASTATIN. [Concomitant]
     Active Substance: LOVASTATIN
  28. SONATA [Concomitant]
     Active Substance: ZALEPLON
  29. WELCHOL [Concomitant]
     Active Substance: COLESEVELAM HYDROCHLORIDE
  30. OMEGA [Concomitant]
  31. METFORMIN HCL [Concomitant]
     Active Substance: METFORMIN HYDROCHLORIDE
  32. OMEPRAZOLE. [Concomitant]
     Active Substance: OMEPRAZOLE
  33. PREMARIN [Concomitant]
     Active Substance: ESTROGENS, CONJUGATED
  34. SONATA [Concomitant]
     Active Substance: ZALEPLON

REACTIONS (1)
  - Pancreatic carcinoma [Unknown]

NARRATIVE: CASE EVENT DATE: 20130701
